FAERS Safety Report 9653372 (Version 1)
Quarter: 2013Q4

REPORT INFORMATION
  Report Type: Report from Study
  Country: US (occurrence: US)
  Receive Date: 20131029
  Receipt Date: 20131029
  Transmission Date: 20140711
  Serious: No
  Sender: FDA-Public Use
  Company Number: US-B.I. PHARMACEUTICALS,INC./RIDGEFIELD-2013-BI-33518BI

PATIENT
  Sex: Female

DRUGS (12)
  1. GILOTRIF [Suspect]
     Indication: LUNG NEOPLASM MALIGNANT
     Dosage: 40 MG
     Route: 048
     Dates: start: 20130917
  2. PROTONIX DR [Concomitant]
  3. DEXAMETHASONE [Concomitant]
  4. NORVASC [Concomitant]
  5. FOLIC ACID [Concomitant]
  6. ACETAMINOPHEN [Concomitant]
  7. BUDESON IDE EC [Concomitant]
  8. KEPPRA [Concomitant]
  9. LIALDA DR [Concomitant]
  10. CETUXIMAB [Concomitant]
  11. LOPERAMIDE [Concomitant]
  12. EUCERIN CREME [Concomitant]

REACTIONS (3)
  - Nausea [Not Recovered/Not Resolved]
  - Fatigue [Not Recovered/Not Resolved]
  - Dizziness [Not Recovered/Not Resolved]
